FAERS Safety Report 6761113-2 (Version None)
Quarter: 2010Q2

REPORT INFORMATION
  Report Type: 
  Country: None (occurrence: None)
  Receive Date: 20100604
  Receipt Date: 20100525
  Transmission Date: 20101027
  Serious: Yes (Death, Hospitalization)
  Sender: FDA-Public Use
  Company Number: 2009AC000215

PATIENT
  Age: 60 Year
  Sex: Female

DRUGS (41)
  1. DIGOXIN [Suspect]
     Indication: ATRIAL FIBRILLATION
     Dosage: .25 MG;QD;PO
     Route: 048
     Dates: start: 20060301
  2. DIGOXIN [Suspect]
     Dosage: 0.25 MG;QD;PO
     Route: 048
     Dates: start: 20060203, end: 20080314
  3. ATROVENT [Concomitant]
  4. FORADIL [Concomitant]
  5. SPIRIVA [Concomitant]
  6. FLONASE [Concomitant]
  7. COUMADIN [Concomitant]
  8. HEPARIN [Concomitant]
  9. LIPITOR [Concomitant]
  10. SINGULAIR [Concomitant]
  11. ADVAIR DISKUS 100/50 [Concomitant]
  12. CARDIZEM [Concomitant]
  13. AVELOX [Concomitant]
  14. HUMIBID [Concomitant]
  15. ALBUTEROL [Concomitant]
  16. MEDROL [Concomitant]
  17. ADVAIR DISKUS 100/50 [Concomitant]
  18. SINGULAIR [Concomitant]
  19. PREDNISONE [Concomitant]
  20. PRILOSEC [Concomitant]
  21. LOVASTATIN [Concomitant]
  22. CARDIZEM [Concomitant]
  23. VASOTEC [Concomitant]
  24. LASIX [Concomitant]
  25. ERYTHROMYCIN [Concomitant]
  26. MAXAIR [Concomitant]
  27. PEPCID [Concomitant]
  28. ESTROGEN [Concomitant]
  29. PROGESTERONE [Concomitant]
  30. AMOXICILLIN [Concomitant]
  31. IBUPROFEN [Concomitant]
  32. GUATFEN [Concomitant]
  33. AUGMENTIN '125' [Concomitant]
  34. WESTCORT [Concomitant]
  35. PROVENTIL [Concomitant]
  36. SUDAFED 12 HOUR [Concomitant]
  37. NITRO-BID [Concomitant]
  38. DILAUDID [Concomitant]
  39. SOY ESTROGEN [Concomitant]
  40. FAMOTIDINE [Concomitant]
  41. PRONESTYL [Concomitant]

REACTIONS (70)
  - ACUTE MYOCARDIAL INFARCTION [None]
  - ACUTE RESPIRATORY DISTRESS SYNDROME [None]
  - ACUTE RESPIRATORY FAILURE [None]
  - ANGINA PECTORIS [None]
  - ASTHMA [None]
  - ATELECTASIS [None]
  - ATRIAL FIBRILLATION [None]
  - BACK PAIN [None]
  - BLOOD ELECTROLYTES ABNORMAL [None]
  - BLOOD POTASSIUM INCREASED [None]
  - BRONCHITIS [None]
  - BRONCHITIS VIRAL [None]
  - BRONCHOSPASM [None]
  - CANDIDIASIS [None]
  - CARDIAC ARREST [None]
  - CARDIAC FAILURE CONGESTIVE [None]
  - CHEST PAIN [None]
  - CHRONIC OBSTRUCTIVE PULMONARY DISEASE [None]
  - COLD SWEAT [None]
  - CONDITION AGGRAVATED [None]
  - CORONARY ARTERY DISEASE [None]
  - COUGH [None]
  - DISORIENTATION [None]
  - DYSPNOEA [None]
  - ECONOMIC PROBLEM [None]
  - FAMILY STRESS [None]
  - FEELING ABNORMAL [None]
  - FUNGAL INFECTION [None]
  - GASTROOESOPHAGEAL REFLUX DISEASE [None]
  - HEADACHE [None]
  - HEPATIC FUNCTION ABNORMAL [None]
  - HEPATOSPLENOMEGALY [None]
  - HYPERGLYCAEMIA [None]
  - HYPERHIDROSIS [None]
  - HYPERLIPIDAEMIA [None]
  - HYPERTENSION [None]
  - HYPOTENSION [None]
  - INTERNATIONAL NORMALISED RATIO INCREASED [None]
  - INTERSTITIAL LUNG DISEASE [None]
  - LEFT ATRIAL DILATATION [None]
  - LUNG HERNIA [None]
  - LUNG INFILTRATION [None]
  - MITRAL VALVE DISEASE [None]
  - MITRAL VALVE STENOSIS [None]
  - MULTIPLE INJURIES [None]
  - MUSCULOSKELETAL CHEST PAIN [None]
  - MYOCARDIAL INFARCTION [None]
  - NAUSEA [None]
  - NECK PAIN [None]
  - NO THERAPEUTIC RESPONSE [None]
  - PAIN [None]
  - PAIN IN EXTREMITY [None]
  - PAIN IN JAW [None]
  - PALPITATIONS [None]
  - PANCREATIC DISORDER [None]
  - PLEURAL EFFUSION [None]
  - PNEUMONIA [None]
  - PROTHROMBIN TIME PROLONGED [None]
  - PULMONARY CONGESTION [None]
  - PULMONARY VASCULAR DISORDER [None]
  - RENAL FAILURE ACUTE [None]
  - RESPIRATORY DISTRESS [None]
  - RESPIRATORY RATE INCREASED [None]
  - RIGHT ATRIAL DILATATION [None]
  - SEPSIS [None]
  - SOCIAL PROBLEM [None]
  - STREPTOCOCCUS TEST POSITIVE [None]
  - UPPER RESPIRATORY TRACT INFECTION [None]
  - VENTRICULAR EXTRASYSTOLES [None]
  - WHEEZING [None]
